FAERS Safety Report 15909624 (Version 1)
Quarter: 2019Q1

REPORT INFORMATION
  Report Type: Spontaneous
  Country: FR (occurrence: FR)
  Receive Date: 20190204
  Receipt Date: 20190204
  Transmission Date: 20190417
  Serious: Yes (Disabling)
  Sender: FDA-Public Use
  Company Number: FR-PFIZER INC-2019043212

PATIENT
  Age: 54 Year
  Sex: Male

DRUGS (3)
  1. MYAMBUTOL [Suspect]
     Active Substance: ETHAMBUTOL HYDROCHLORIDE
     Indication: RESPIRATORY TRACT INFECTION
     Dosage: 800 MG, 1X/DAY
     Route: 048
     Dates: start: 20060115, end: 20061006
  2. IZILOX [Suspect]
     Active Substance: MOXIFLOXACIN HYDROCHLORIDE
     Indication: RESPIRATORY TRACT INFECTION
     Dosage: 400 MG, 1X/DAY
     Route: 048
     Dates: start: 20060115, end: 20061010
  3. AZITHROMYCINE [Suspect]
     Active Substance: AZITHROMYCIN
     Indication: RESPIRATORY TRACT INFECTION
     Dosage: 250 MG, 1X/DAY
     Route: 048
     Dates: start: 20060115

REACTIONS (1)
  - Visual impairment [Recovering/Resolving]

NARRATIVE: CASE EVENT DATE: 20061006
